FAERS Safety Report 5001687-5 (Version None)
Quarter: 2006Q2

REPORT INFORMATION
  Report Type: 
  Country: None (occurrence: None)
  Receive Date: 20060511
  Receipt Date: 20060511
  Transmission Date: 20061013
  Serious: Yes (Other)
  Sender: FDA-Public Use
  Company Number: None

PATIENT
  Sex: Male
  Weight: 73.0291 kg

DRUGS (1)
  1. KETEK [Suspect]
     Indication: BRONCHITIS ACUTE
     Dosage: SEE IMAGE
     Dates: start: 20060406

REACTIONS (4)
  - ALANINE AMINOTRANSFERASE INCREASED [None]
  - ASPARTATE AMINOTRANSFERASE INCREASED [None]
  - EOSINOPHIL COUNT INCREASED [None]
  - MALAISE [None]
